FAERS Safety Report 16142616 (Version 3)
Quarter: 2020Q1

REPORT INFORMATION
  Report Type: Report from Study
  Country: CA (occurrence: CA)
  Receive Date: 20190401
  Receipt Date: 20200331
  Transmission Date: 20200409
  Serious: Yes (Other)
  Sender: FDA-Public Use
  Company Number: CA-BRISTOL-MYERS SQUIBB COMPANY-BMS-2018-024609

PATIENT
  Age: 56 Year
  Sex: Female

DRUGS (5)
  1. FOLIC ACID. [Concomitant]
     Active Substance: FOLIC ACID
     Indication: PRODUCT USED FOR UNKNOWN INDICATION
     Dosage: UNK
     Route: 065
  2. METHOTREXATE. [Concomitant]
     Active Substance: METHOTREXATE
     Indication: PRODUCT USED FOR UNKNOWN INDICATION
     Dosage: UNK
     Route: 065
  3. VITAMIN D [ERGOCALCIFEROL] [Concomitant]
     Active Substance: ERGOCALCIFEROL
     Indication: PRODUCT USED FOR UNKNOWN INDICATION
     Dosage: UNK
     Route: 065
  4. ABATACEPT [Suspect]
     Active Substance: ABATACEPT
     Indication: RHEUMATOID ARTHRITIS
     Dosage: 500 MG, Q4WK
     Route: 042
     Dates: start: 20141210
  5. IRON [Concomitant]
     Active Substance: IRON
     Indication: PRODUCT USED FOR UNKNOWN INDICATION
     Dosage: UNK
     Route: 065

REACTIONS (14)
  - Headache [Not Recovered/Not Resolved]
  - Inflammation [Unknown]
  - Drug ineffective [Unknown]
  - Peripheral swelling [Unknown]
  - Somnolence [Unknown]
  - Taste disorder [Unknown]
  - Arthritis [Unknown]
  - Wrong technique in device usage process [Unknown]
  - Adverse event [Unknown]
  - Syncope [Unknown]
  - Dizziness [Recovered/Resolved]
  - Paraesthesia oral [Recovered/Resolved]
  - Pain [Unknown]
  - Product dose omission [Unknown]

NARRATIVE: CASE EVENT DATE: 20190319
